FAERS Safety Report 5288923-5 (Version None)
Quarter: 2007Q1

REPORT INFORMATION
  Report Type: 
  Country: None (occurrence: None)
  Receive Date: 20070119
  Receipt Date: 20060925
  Transmission Date: 20070707
  Serious: Yes (Other)
  Sender: FDA-Public Use
  Company Number: BDI-008677

PATIENT
  Age: 47 Year
  Sex: Female
  Weight: 62.73 kg

DRUGS (3)
  1. PROHANCE [Suspect]
     Indication: NUCLEAR MAGNETIC RESONANCE IMAGING
     Dosage: 13 ML ONCE IV
     Route: 042
     Dates: start: 20060922, end: 20060922
  2. PROHANCE [Suspect]
     Indication: PAIN IN EXTREMITY
     Dosage: 13 ML ONCE IV
     Route: 042
     Dates: start: 20060922, end: 20060922
  3. ATIVAN [Concomitant]

REACTIONS (1)
  - HYPERSENSITIVITY [None]
